FAERS Safety Report 8584196-6 (Version None)
Quarter: 2012Q3

REPORT INFORMATION
  Report Type: 
  Country: None (occurrence: None)
  Receive Date: 20120810
  Receipt Date: 20120803
  Transmission Date: 20120928
  Serious: Yes (Hospitalization)
  Sender: FDA-Public Use
  Company Number: FR-BIOGENIDEC-2010BI043065

PATIENT
  Age: 40 Year
  Sex: Female
  Weight: 49 kg

DRUGS (10)
  1. CLOBAZAM [Concomitant]
  2. VESICARE [Concomitant]
     Indication: INCONTINENCE
     Route: 048
  3. MODAFANIL [Concomitant]
     Route: 048
  4. CLOBAZAM [Concomitant]
     Dates: start: 20100523
  5. TROSPIUM CHLORIDE [Concomitant]
  6. NECIR (NOS) [Concomitant]
     Indication: INCONTINENCE
     Route: 048
  7. TYSABRI [Suspect]
     Indication: MULTIPLE SCLEROSIS
     Route: 042
     Dates: start: 20081208, end: 20100507
  8. TYSABRI [Suspect]
     Route: 042
     Dates: start: 20100701, end: 20110824
  9. TAMSULOSIN HYDROCHLORIDE [Concomitant]
  10. DEPAKENE [Concomitant]
     Indication: EPILEPSY
     Route: 048
     Dates: start: 20020101

REACTIONS (1)
  - EPILEPSY [None]
